FAERS Safety Report 6560370-5 (Version None)
Quarter: 2010Q1

REPORT INFORMATION
  Report Type: 
  Country: None (occurrence: None)
  Receive Date: 20100129
  Receipt Date: 20090924
  Transmission Date: 20100710
  Serious: No
  Sender: FDA-Public Use
  Company Number: US-ABBOTT-09P-163-0598967-00

PATIENT
  Sex: Male
  Weight: 68.1 kg

DRUGS (4)
  1. HUMIRA [Suspect]
     Indication: PSORIASIS
     Dates: start: 20080101
  2. HUMIRA [Suspect]
     Indication: PSORIATIC ARTHROPATHY
  3. LOPRESSOR [Concomitant]
     Indication: CARDIAC DISORDER
     Dates: start: 19980101
  4. DIOVAN HCT [Concomitant]
     Indication: CARDIAC DISORDER
     Dosage: 160/12.5 MG
     Dates: start: 19880101

REACTIONS (2)
  - INJECTION SITE REACTION [None]
  - INJECTION SITE VESICLES [None]
